FAERS Safety Report 8023618-6 (Version None)
Quarter: 2012Q1

REPORT INFORMATION
  Report Type: 
  Country: None (occurrence: None)
  Receive Date: 20120104
  Receipt Date: 20120104
  Transmission Date: 20120608
  Serious: Yes (Hospitalization)
  Sender: FDA-Public Use
  Company Number: None

PATIENT
  Sex: Female
  Weight: 69.4 kg

DRUGS (3)
  1. CARBOPLATIN [Suspect]
     Dosage: 425 MG
     Dates: end: 20111215
  2. LIPITOR [Concomitant]
  3. TAXOL [Suspect]
     Dosage: 300 MG
     Dates: end: 20111215

REACTIONS (4)
  - BLOOD CREATININE INCREASED [None]
  - INTESTINAL ISCHAEMIA [None]
  - WHITE BLOOD CELL COUNT INCREASED [None]
  - CLOSTRIDIUM DIFFICILE COLITIS [None]
